FAERS Safety Report 24728419 (Version 1)
Quarter: 2024Q4

REPORT INFORMATION
  Report Type: Spontaneous
  Country: US (occurrence: US)
  Receive Date: 20241212
  Receipt Date: 20241212
  Transmission Date: 20250115
  Serious: No
  Sender: PFIZER
  Company Number: US-PFIZER INC-PV202400121466

PATIENT
  Age: 47 Year
  Sex: Female

DRUGS (1)
  1. ZAVZPRET [Suspect]
     Active Substance: ZAVEGEPANT HYDROCHLORIDE
     Indication: Migraine
     Dosage: 1 DF, AS NEEDED (USE 1 SPRAY IN 1 NOSTRIL AS NEEDED, MAX 1 SPRAY PER 24 HRS)
     Route: 045

REACTIONS (1)
  - Therapeutic product effect delayed [Recovered/Resolved]
